FAERS Safety Report 8175502-5 (Version None)
Quarter: 2012Q1

REPORT INFORMATION
  Report Type: 
  Country: None (occurrence: None)
  Receive Date: 20120229
  Receipt Date: 20120223
  Transmission Date: 20120608
  Serious: Yes (Disabling)
  Sender: FDA-Public Use
  Company Number: FR-MERCK-1202FRA00114

PATIENT
  Age: 54 Year
  Sex: Male

DRUGS (4)
  1. ISENTRESS [Suspect]
     Indication: HIV INFECTION
     Route: 048
     Dates: start: 20090629, end: 20110214
  2. RITONAVIR [Concomitant]
     Indication: HIV INFECTION
     Route: 065
     Dates: start: 20110214
  3. DARUNAVIR [Concomitant]
     Indication: HIV INFECTION
     Route: 048
     Dates: start: 20110214
  4. EMTRICITABINE AND TENOFOVIR DISOPROXIL FUMARATE [Suspect]
     Indication: HIV INFECTION
     Route: 048
     Dates: start: 20080701, end: 20110804

REACTIONS (5)
  - NIGHT SWEATS [None]
  - OSTEOPENIA [None]
  - PAIN IN EXTREMITY [None]
  - SLEEP DISORDER [None]
  - ERECTILE DYSFUNCTION [None]
